FAERS Safety Report 5635596-5 (Version None)
Quarter: 2008Q1

REPORT INFORMATION
  Report Type: 
  Country: None (occurrence: None)
  Receive Date: 20080222
  Receipt Date: 20080213
  Transmission Date: 20080703
  Serious: Yes (Hospitalization)
  Sender: FDA-Public Use
  Company Number: US-JNJFOC-20071102953

PATIENT
  Sex: Male
  Weight: 39 kg

DRUGS (9)
  1. INFLIXIMAB [Suspect]
     Route: 042
  2. INFLIXIMAB [Suspect]
     Route: 042
  3. INFLIXIMAB [Suspect]
     Indication: COLITIS ULCERATIVE
     Route: 042
  4. METHOTREXATE [Concomitant]
  5. METHOTREXATE [Concomitant]
     Dosage: EVERY SATURDAY AND SUNDAY
  6. FOLIC ACID [Concomitant]
     Dosage: MONDAY THROUGH FRIDAY
  7. PENTASA [Concomitant]
  8. MERCAPTOPURINE [Concomitant]
  9. PREDNISONE TAB [Concomitant]
     Route: 048

REACTIONS (1)
  - COLITIS ULCERATIVE [None]
